FAERS Safety Report 22196773 (Version 2)
Quarter: 2023Q2

REPORT INFORMATION
  Report Type: Spontaneous
  Country: US (occurrence: US)
  Receive Date: 20230411
  Receipt Date: 20230417
  Transmission Date: 20230721
  Serious: No
  Sender: FDA-Public Use
  Company Number: US-BAYER-2023A045247

PATIENT
  Sex: Female

DRUGS (1)
  1. ESTRADIOL [Suspect]
     Active Substance: ESTRADIOL
     Dosage: 0.075 MG, QD
     Route: 062

REACTIONS (3)
  - Intermenstrual bleeding [None]
  - Device adhesion issue [None]
  - Hypersensitivity [None]
